FAERS Safety Report 8356371-7 (Version None)
Quarter: 2012Q2

REPORT INFORMATION
  Report Type: 
  Country: None (occurrence: None)
  Receive Date: 20120510
  Receipt Date: 20120430
  Transmission Date: 20120825
  Serious: Yes (Hospitalization, Other)
  Sender: FDA-Public Use
  Company Number: 2012P1019282

PATIENT
  Age: 65 Year
  Sex: Female

DRUGS (2)
  1. TOPIRAMATE [Suspect]
     Indication: MIGRAINE
     Dosage: 50 MG;QD
  2. CITALOPRAM HYDROBROMIDE [Suspect]
     Indication: DEPRESSION
     Dosage: 20 MG;QD

REACTIONS (8)
  - TREMOR [None]
  - SEROTONIN SYNDROME [None]
  - CONFUSIONAL STATE [None]
  - IRRITABILITY [None]
  - PYREXIA [None]
  - RESTLESSNESS [None]
  - MYOCLONUS [None]
  - HYPERREFLEXIA [None]
